FAERS Safety Report 7545774-6 (Version None)
Quarter: 2011Q2

REPORT INFORMATION
  Report Type: 
  Country: None (occurrence: None)
  Receive Date: 20110614
  Receipt Date: 20110531
  Transmission Date: 20111010
  Serious: Yes (Hospitalization)
  Sender: FDA-Public Use
  Company Number: US-ELI_LILLY_AND_COMPANY-US201104001278

PATIENT
  Sex: Female
  Weight: 58.957 kg

DRUGS (6)
  1. OMEPRAZOLE [Concomitant]
  2. FORTEO [Suspect]
     Indication: OSTEOPOROSIS
     Dosage: 20 UG, QD
     Route: 058
     Dates: start: 20110319, end: 20110329
  3. CLONIDINE [Concomitant]
  4. LIBRAX [Concomitant]
  5. DIPHENHYDRAMINE HCL [Concomitant]
  6. IMODIUM [Concomitant]

REACTIONS (13)
  - OROPHARYNGEAL PAIN [None]
  - ASTHENIA [None]
  - DISTURBANCE IN ATTENTION [None]
  - PHARYNGEAL ERYTHEMA [None]
  - DIARRHOEA [None]
  - HEAD DISCOMFORT [None]
  - FATIGUE [None]
  - NASAL CONGESTION [None]
  - HEADACHE [None]
  - DIZZINESS [None]
  - BONE PAIN [None]
  - NASOPHARYNGITIS [None]
  - FEELING ABNORMAL [None]
